FAERS Safety Report 23468067 (Version 1)
Quarter: 2024Q1

REPORT INFORMATION
  Report Type: Report from Study
  Country: ES (occurrence: ES)
  Receive Date: 20240201
  Receipt Date: 20240201
  Transmission Date: 20240410
  Serious: Yes (Other)
  Sender: FDA-Public Use
  Company Number: ES-CELLTRION INC.-2024ES002265

PATIENT

DRUGS (2)
  1. BEVACIZUMAB [Suspect]
     Active Substance: BEVACIZUMAB
     Indication: Renal cancer
     Dosage: LAST ADMINISTRATION DATE WAS 12/MAY/2023
     Route: 065
     Dates: start: 20210930, end: 20230512
  2. ATEZOLIZUMAB [Suspect]
     Active Substance: ATEZOLIZUMAB
     Indication: Renal cancer
     Dosage: LAST ADMINISTRATION DATE WAS 12/MAY/2023
     Route: 065
     Dates: start: 20210930, end: 20230512

REACTIONS (1)
  - Nephropathy toxic [Recovered/Resolved]
